FAERS Safety Report 12338031 (Version 2)
Quarter: 2016Q3

REPORT INFORMATION
  Report Type: Spontaneous
  Country: GB (occurrence: GB)
  Receive Date: 20160505
  Receipt Date: 20160713
  Transmission Date: 20161109
  Serious: Yes (Other)
  Sender: FDA-Public Use
  Company Number: GB-INCYTE CORPORATION-2016IN001819

PATIENT
  Age: 67 Year
  Sex: Male
  Weight: 62 kg

DRUGS (1)
  1. JAKAFI [Suspect]
     Active Substance: RUXOLITINIB
     Indication: PRIMARY MYELOFIBROSIS
     Dosage: 15 MG, BID (BO)
     Route: 048
     Dates: start: 201506, end: 201512

REACTIONS (2)
  - Transaminases increased [Recovered/Resolved]
  - Spleen disorder [Recovering/Resolving]

NARRATIVE: CASE EVENT DATE: 201509
